FAERS Safety Report 9914786 (Version 6)
Quarter: 2015Q2

REPORT INFORMATION
  Report Type: Spontaneous
  Country: US (occurrence: US)
  Receive Date: 20140220
  Receipt Date: 20150619
  Transmission Date: 20150821
  Serious: Yes (Hospitalization, Other)
  Sender: FDA-Public Use
  Company Number: US-009507513-1203USA02820

PATIENT
  Sex: Female
  Weight: 69.39 kg

DRUGS (5)
  1. ACTONEL [Suspect]
     Active Substance: RISEDRONATE SODIUM
     Indication: OSTEOPOROSIS
     Dosage: 35 MG, QW
  2. FOSAMAX [Suspect]
     Active Substance: ALENDRONATE SODIUM
     Dosage: 70 MG, UNK
     Route: 048
     Dates: start: 20020801, end: 20030813
  3. FOSAMAX [Suspect]
     Active Substance: ALENDRONATE SODIUM
     Indication: OSTEOPOROSIS
     Dosage: 10 MG, UNK
     Route: 048
     Dates: start: 20000419, end: 20020705
  4. FOSAMAX [Suspect]
     Active Substance: ALENDRONATE SODIUM
     Dosage: 10 MG, UNK
     Route: 048
  5. FOSAMAX [Suspect]
     Active Substance: ALENDRONATE SODIUM
     Dosage: 70 MG, UNK
     Route: 048

REACTIONS (64)
  - Open reduction of fracture [Unknown]
  - Compression fracture [Unknown]
  - Osteoarthritis [Unknown]
  - Oesophageal atony [Unknown]
  - Gastrointestinal dilation procedure [Unknown]
  - Cardiomegaly [Unknown]
  - Intramedullary rod insertion [Unknown]
  - Spinal compression fracture [Unknown]
  - Drug intolerance [Unknown]
  - Rib fracture [Unknown]
  - Blood parathyroid hormone increased [Recovered/Resolved]
  - Oesophageal stenosis [Unknown]
  - Headache [Unknown]
  - Hyponatraemia [Unknown]
  - Osteopenia [Unknown]
  - Osteoma [Unknown]
  - Chronic obstructive pulmonary disease [Not Recovered/Not Resolved]
  - Anaemia [Not Recovered/Not Resolved]
  - Rotator cuff syndrome [Unknown]
  - Back pain [Not Recovered/Not Resolved]
  - Abdominal pain [Unknown]
  - Oesophageal spasm [Unknown]
  - Vertebroplasty [Unknown]
  - Palpitations [Unknown]
  - Arthritis [Unknown]
  - Oedema peripheral [Not Recovered/Not Resolved]
  - Femur fracture [Recovered/Resolved]
  - Inguinal hernia [Unknown]
  - Vertebroplasty [Unknown]
  - Helicobacter gastritis [Unknown]
  - Nephrolithiasis [Unknown]
  - Rales [Unknown]
  - Neuralgia [Unknown]
  - Pollakiuria [Not Recovered/Not Resolved]
  - Cardiac failure congestive [Unknown]
  - Hypertension [Unknown]
  - Spinal compression fracture [Not Recovered/Not Resolved]
  - Compression fracture [Unknown]
  - Fibula fracture [Recovered/Resolved]
  - Kyphosis [Unknown]
  - Peptic ulcer [Unknown]
  - Spinal compression fracture [Unknown]
  - Fluid retention [Unknown]
  - Restrictive pulmonary disease [Unknown]
  - Diverticulitis [Unknown]
  - Gastric ulcer [Unknown]
  - Spinal compression fracture [Unknown]
  - Hydronephrosis [Unknown]
  - Anaemia [Unknown]
  - Diverticulum [Unknown]
  - Dyspnoea exertional [Unknown]
  - Lumbar spinal stenosis [Unknown]
  - Exostosis [Unknown]
  - Aortic disorder [Unknown]
  - Osteoarthritis [Unknown]
  - Dysphagia [Unknown]
  - Atypical femur fracture [Recovering/Resolving]
  - Femur fracture [Unknown]
  - Carpal tunnel syndrome [Unknown]
  - Spinal column stenosis [Unknown]
  - Adverse drug reaction [Unknown]
  - Adverse drug reaction [Unknown]
  - Carpal tunnel syndrome [Unknown]
  - Gastrooesophageal reflux disease [Unknown]

NARRATIVE: CASE EVENT DATE: 2001
